FAERS Safety Report 5455418-5 (Version None)
Quarter: 2007Q3

REPORT INFORMATION
  Report Type: 
  Country: None (occurrence: None)
  Receive Date: 20070918
  Receipt Date: 20070330
  Transmission Date: 20080115
  Serious: Yes (Hospitalization)
  Sender: FDA-Public Use
  Company Number: US-ASTRAZENECA-2006UW20944

PATIENT
  Sex: Female
  Weight: 56.8 kg

DRUGS (5)
  1. SEROQUEL [Suspect]
     Indication: BIPOLAR DISORDER
     Dosage: 300 - 400 MG
     Route: 048
     Dates: start: 20040801, end: 20061001
  2. SEROQUEL [Suspect]
     Indication: MENTAL DISORDER
     Dosage: 300 - 400 MG
     Route: 048
     Dates: start: 20040801, end: 20061001
  3. KLONOPIN [Concomitant]
  4. CELEXA [Concomitant]
  5. XANEX [Concomitant]

REACTIONS (2)
  - DIABETES MELLITUS [None]
  - PANCREATITIS [None]
